FAERS Safety Report 4728614-X (Version None)
Quarter: 2005Q3

REPORT INFORMATION
  Report Type: 
  Country: None (occurrence: None)
  Receive Date: 20050727
  Receipt Date: 20050504
  Transmission Date: 20060218
  Serious: No
  Sender: FDA-Public Use
  Company Number: 2005SP000588

PATIENT

DRUGS (1)
  1. LUNESTA [Suspect]
     Dosage: 3 MG; ORAL
     Route: 048
     Dates: start: 20050101

REACTIONS (2)
  - INSOMNIA [None]
  - PALPITATIONS [None]
